FAERS Safety Report 15944831 (Version 1)
Quarter: 2019Q1

REPORT INFORMATION
  Report Type: Spontaneous
  Country: US (occurrence: US)
  Receive Date: 20190211
  Receipt Date: 20190211
  Transmission Date: 20190417
  Serious: No
  Sender: FDA-Public Use
  Company Number: US-PERRIGO-18US000320

PATIENT
  Age: 1 Year
  Sex: Male
  Weight: 7.71 kg

DRUGS (3)
  1. ALBUTEROL                          /00139501/ [Concomitant]
     Active Substance: ALBUTEROL
     Indication: ASTHMA
     Dosage: UNKNOWN, PRN
     Route: 065
     Dates: start: 2016
  2. IBUPROFEN. [Suspect]
     Active Substance: IBUPROFEN
     Indication: TEETHING
     Dosage: 500 MG, SINGLE
     Route: 048
     Dates: start: 20180110, end: 20180110
  3. IBUPROFEN. [Suspect]
     Active Substance: IBUPROFEN
     Indication: PYREXIA
     Dosage: 50 MG, THREE TIMES
     Route: 048
     Dates: start: 201710, end: 201710

REACTIONS (3)
  - Product administered to patient of inappropriate age [Recovered/Resolved]
  - Accidental exposure to product [Recovered/Resolved]
  - Somnolence [Not Recovered/Not Resolved]

NARRATIVE: CASE EVENT DATE: 201710
